FAERS Safety Report 7737294-0 (Version None)
Quarter: 2011Q3

REPORT INFORMATION
  Report Type: 
  Country: None (occurrence: None)
  Receive Date: 20110908
  Receipt Date: 20110830
  Transmission Date: 20111222
  Serious: Yes (Hospitalization)
  Sender: FDA-Public Use
  Company Number: JP-ASTRAZENECA-2011SE48814

PATIENT
  Age: 68 Year
  Sex: Female
  Weight: 51 kg

DRUGS (21)
  1. ALFAROL [Concomitant]
     Indication: OSTEOPOROSIS
     Route: 048
  2. SUCCINYLCHOLINE CHLORIDE INJ [Concomitant]
     Route: 042
     Dates: start: 20110805
  3. ATARAX [Concomitant]
     Route: 042
     Dates: start: 20110805
  4. EVISTA [Concomitant]
     Indication: OSTEOPOROSIS
     Route: 048
  5. TSUMURA DAIKENTYUTO [Concomitant]
     Indication: CONSTIPATION
     Route: 048
  6. DIPRIVAN [Concomitant]
     Route: 042
     Dates: start: 20110805
  7. POTASSIUM CHLORIDE [Concomitant]
     Route: 042
     Dates: start: 20110805
  8. PANTOSIN [Concomitant]
     Indication: CONSTIPATION
     Route: 065
  9. SOFT SANTEAR [Concomitant]
     Route: 047
  10. PACETCOOL [Concomitant]
     Route: 042
     Dates: start: 20110805
  11. ZANTAC [Concomitant]
     Route: 042
     Dates: start: 20110805
  12. CANDESARTAN CILEXETIL AND HYDROCHLOROTHIAZIDE [Suspect]
     Indication: HYPERTENSION
     Route: 048
     Dates: end: 20110810
  13. MAGNESIUM OXIDE [Concomitant]
     Indication: CONSTIPATION
     Route: 048
  14. PRIMPERAN TAB [Concomitant]
     Route: 042
     Dates: start: 20110805
  15. PENTAZOCINE LACTATE [Concomitant]
     Route: 042
     Dates: start: 20110805
  16. TIMOLEATE [Concomitant]
     Route: 047
  17. BRIDION [Concomitant]
     Route: 042
     Dates: start: 20110805
  18. ASCORBIC ACID [Concomitant]
     Route: 042
     Dates: start: 20110805
  19. ROCURONIUM BROMIDE [Concomitant]
     Route: 042
     Dates: start: 20110805
  20. SOLULACT [Concomitant]
     Route: 042
     Dates: start: 20110805
  21. SEVOFLURANE [Concomitant]
     Route: 055
     Dates: start: 20110805

REACTIONS (5)
  - ALTERED STATE OF CONSCIOUSNESS [None]
  - HYPONATRAEMIA [None]
  - VOMITING [None]
  - DYSKINESIA [None]
  - HEADACHE [None]
